FAERS Safety Report 22083331 (Version 2)
Quarter: 2023Q2

REPORT INFORMATION
  Report Type: Other
  Country: IN (occurrence: None)
  Receive Date: 20230310
  Receipt Date: 20230403
  Transmission Date: 20230722
  Serious: Yes (Death, Hospitalization)
  Sender: FDA-Public Use
  Company Number: IN-ROCHE-3246740

PATIENT
  Age: 37 Year
  Sex: Female

DRUGS (1)
  1. TECENTRIQ [Suspect]
     Active Substance: ATEZOLIZUMAB
     Indication: Triple negative breast cancer
     Route: 041
     Dates: start: 20221021

REACTIONS (6)
  - Seizure [Unknown]
  - Abdominal pain [Recovered/Resolved]
  - Constipation [Recovered/Resolved]
  - Pyrexia [Recovered/Resolved]
  - Ill-defined disorder [Unknown]
  - Death [Fatal]

NARRATIVE: CASE EVENT DATE: 20230223
